FAERS Safety Report 5378560-6 (Version None)
Quarter: 2007Q3

REPORT INFORMATION
  Report Type: 
  Country: None (occurrence: None)
  Receive Date: 20070705
  Receipt Date: 20070626
  Transmission Date: 20080115
  Serious: Yes (Other)
  Sender: FDA-Public Use
  Company Number: CA-JNJFOC-20070606835

PATIENT
  Sex: Male
  Weight: 76.2 kg

DRUGS (1)
  1. NIZORAL [Suspect]
     Indication: DRUG USE FOR UNKNOWN INDICATION
     Dosage: ONCE WEEKLY FOR A NUMBER OF YEARS
     Route: 061

REACTIONS (2)
  - APHONIA [None]
  - GASTROOESOPHAGEAL REFLUX DISEASE [None]
